FAERS Safety Report 8999205 (Version 1)
Quarter: 2013Q1

REPORT INFORMATION
  Report Type: Spontaneous
  Country: IT (occurrence: IT)
  Receive Date: 20130103
  Receipt Date: 20130103
  Transmission Date: 20140127
  Serious: Yes (Hospitalization)
  Sender: FDA-Public Use
  Company Number: IT-ELI_LILLY_AND_COMPANY-IT201212007228

PATIENT
  Age: 45 Year
  Sex: Female

DRUGS (5)
  1. CYMBALTA [Suspect]
     Dosage: 1 DF, SINGLE
     Route: 048
     Dates: start: 20121212, end: 20121212
  2. DEPAKIN [Concomitant]
     Dosage: 1 DF, SINGLE
     Route: 048
     Dates: start: 20121212, end: 20121212
  3. FORMISTIN [Concomitant]
     Dosage: 1 DF, SINGLE
     Route: 048
     Dates: start: 20121212, end: 20121212
  4. TRITTICO [Concomitant]
     Dosage: 1 DF, SINGLE
     Route: 048
     Dates: start: 20121212, end: 20121212
  5. ENALAPRIL MALEATE W/ LERCANIDIPIN HCL [Concomitant]
     Dosage: 1 DF, SINGLE
     Route: 048
     Dates: start: 20121212, end: 20121212

REACTIONS (2)
  - Drug abuse [Recovering/Resolving]
  - Overdose [Unknown]
